FAERS Safety Report 8207052-1 (Version None)
Quarter: 2012Q1

REPORT INFORMATION
  Report Type: 
  Country: None (occurrence: None)
  Receive Date: 20120314
  Receipt Date: 20120302
  Transmission Date: 20120608
  Serious: Yes (Other)
  Sender: FDA-Public Use
  Company Number: US-JNJFOC-20120302470

PATIENT
  Sex: Female
  Weight: 66.68 kg

DRUGS (4)
  1. REMICADE [Suspect]
     Indication: CROHN'S DISEASE
     Dosage: DOSE: 4 VIALS OF 100 MG EACH
     Route: 042
     Dates: start: 20090101
  2. ZANTAC [Suspect]
     Indication: GASTRITIS EROSIVE
     Route: 065
     Dates: start: 20110101
  3. MOTRIN [Suspect]
     Indication: PRODUCT USED FOR UNKNOWN INDICATION
     Route: 065
  4. PRILOSEC [Concomitant]
     Route: 065

REACTIONS (10)
  - DYSPHAGIA [None]
  - THERAPEUTIC RESPONSE DECREASED [None]
  - PRODUCT QUALITY ISSUE [None]
  - SINUSITIS [None]
  - GASTRITIS EROSIVE [None]
  - CHANGE OF BOWEL HABIT [None]
  - CONSTIPATION [None]
  - SMALL INTESTINAL STENOSIS [None]
  - DYSPHONIA [None]
  - GASTROINTESTINAL OEDEMA [None]
